FAERS Safety Report 8088834-6 (Version None)
Quarter: 2012Q1

REPORT INFORMATION
  Report Type: 
  Country: None (occurrence: None)
  Receive Date: 20120128
  Receipt Date: 20110405
  Transmission Date: 20120608
  Serious: No
  Sender: FDA-Public Use
  Company Number: US-ABBOTT-11P-163-0717086-00

PATIENT
  Sex: Male
  Weight: 93.978 kg

DRUGS (6)
  1. FOLIC ACID [Concomitant]
     Indication: VITAMIN SUPPLEMENTATION
  2. METHOTREXATE [Concomitant]
     Indication: RHEUMATOID ARTHRITIS
  3. METFFORMIN HYDROCHLORIDE [Concomitant]
     Indication: DIABETES MELLITUS
  4. HUMIRA [Suspect]
     Indication: RHEUMATOID ARTHRITIS
     Dates: start: 20050301, end: 20100101
  5. UNKNOWN INSULIN [Concomitant]
     Indication: DIABETES MELLITUS
  6. HUMIRA [Suspect]
     Dates: start: 20110301

REACTIONS (2)
  - PAIN IN EXTREMITY [None]
  - JOINT STIFFNESS [None]
